FAERS Safety Report 25254450 (Version 1)
Quarter: 2025Q2

REPORT INFORMATION
  Report Type: Spontaneous
  Country: US (occurrence: US)
  Receive Date: 20250430
  Receipt Date: 20250430
  Transmission Date: 20250716
  Serious: Yes (Other)
  Sender: SPECGX
  Company Number: US-SPECGX-T202500823

PATIENT

DRUGS (1)
  1. PAMELOR [Suspect]
     Active Substance: NORTRIPTYLINE HYDROCHLORIDE
     Indication: Depression
     Route: 065

REACTIONS (3)
  - Electrocardiogram PR prolongation [Unknown]
  - Electrocardiogram QRS complex prolonged [Unknown]
  - Drug intolerance [Unknown]
